FAERS Safety Report 9136777 (Version 1)
Quarter: 2013Q1

REPORT INFORMATION
  Report Type: Report from Study
  Country: US (occurrence: US)
  Receive Date: 20130304
  Receipt Date: 20130304
  Transmission Date: 20140127
  Serious: No
  Sender: FDA-Public Use
  Company Number: US-ABBOTT-12P-163-0931280-00

PATIENT
  Age: 64 Year
  Sex: Male
  Weight: 97.61 kg

DRUGS (8)
  1. ANDROGEL 1% [Suspect]
     Indication: BLOOD TESTOSTERONE DECREASED
     Route: 061
     Dates: start: 20120223, end: 20120315
  2. ANDROGEL 1% [Suspect]
     Route: 061
     Dates: start: 20120315
  3. SPIRIVA [Concomitant]
     Indication: ASTHMA
  4. SPIRIVA [Concomitant]
     Indication: DYSPNOEA
  5. LISINOPRIL [Concomitant]
     Indication: HYPERTENSION
  6. METOPROLOL [Concomitant]
     Indication: CARDIAC DISORDER
  7. PRAVASTATIN [Concomitant]
     Indication: BLOOD CHOLESTEROL INCREASED
  8. PRAVASTATIN [Concomitant]
     Indication: ISCHAEMIC HEART DISEASE PROPHYLAXIS

REACTIONS (2)
  - Drug ineffective [Not Recovered/Not Resolved]
  - Weight increased [Not Recovered/Not Resolved]
